FAERS Safety Report 24305306 (Version 9)
Quarter: 2025Q2

REPORT INFORMATION
  Report Type: Report from Study
  Country: BR (occurrence: BR)
  Receive Date: 20240911
  Receipt Date: 20250410
  Transmission Date: 20250717
  Serious: Yes (Hospitalization, Other)
  Sender: NOVARTIS
  Company Number: BR-002147023-NVSC2024BR171678

PATIENT
  Age: 44 Year
  Sex: Female
  Weight: 79 kg

DRUGS (9)
  1. KISQALI [Suspect]
     Active Substance: RIBOCICLIB
     Indication: Neoplasm malignant
     Dosage: 3 DOSAGE FORM, QD
     Route: 048
     Dates: start: 20240816, end: 20240905
  2. KISQALI [Suspect]
     Active Substance: RIBOCICLIB
     Indication: Breast cancer metastatic
     Route: 065
  3. KISQALI [Suspect]
     Active Substance: RIBOCICLIB
     Route: 065
     Dates: start: 20241108, end: 20241128
  4. KISQALI [Suspect]
     Active Substance: RIBOCICLIB
     Dosage: 3 DOSAGE FORM, QD
     Route: 065
  5. ZOLPIDEM [Suspect]
     Active Substance: ZOLPIDEM TARTRATE
     Indication: Sleep disorder
     Dosage: 1 DOSAGE FORM, QD
     Route: 065
     Dates: start: 20240610
  6. ZOLPIDEM [Suspect]
     Active Substance: ZOLPIDEM TARTRATE
     Route: 065
  7. ESCITALOPRAM [Suspect]
     Active Substance: ESCITALOPRAM OXALATE
     Indication: Product used for unknown indication
     Dosage: 1 DOSAGE FORM, QD
     Route: 065
     Dates: start: 20240610
  8. AMOXICILLIN AND CLAVULANATE POTASSIUM [Concomitant]
     Active Substance: AMOXICILLIN\CLAVULANATE POTASSIUM
     Indication: Product used for unknown indication
     Route: 065
  9. TRAZODONE [Concomitant]
     Active Substance: TRAZODONE HYDROCHLORIDE
     Indication: Product used for unknown indication
     Route: 065

REACTIONS (31)
  - Pneumonia [Recovered/Resolved]
  - Chest pain [Unknown]
  - Back pain [Unknown]
  - Syncope [Unknown]
  - Malaise [Recovered/Resolved]
  - Metastasis [Unknown]
  - Aneurysm [Not Recovered/Not Resolved]
  - Blindness [Unknown]
  - Dermatitis allergic [Recovered/Resolved]
  - Secretion discharge [Recovered/Resolved]
  - Dry skin [Not Recovered/Not Resolved]
  - Fatigue [Recovering/Resolving]
  - Nausea [Unknown]
  - Depression [Recovering/Resolving]
  - Stress [Unknown]
  - Psychological trauma [Unknown]
  - Feeling abnormal [Unknown]
  - Pain [Recovering/Resolving]
  - Malaise [Unknown]
  - Anxiety [Unknown]
  - Vomiting [Unknown]
  - Migraine [Recovering/Resolving]
  - Fear [Unknown]
  - Confusional state [Unknown]
  - Memory impairment [Unknown]
  - Headache [Not Recovered/Not Resolved]
  - Premature menopause [Unknown]
  - Hepatic steatosis [Unknown]
  - Breast mass [Unknown]
  - Bone lesion [Unknown]
  - Menopausal symptoms [Unknown]

NARRATIVE: CASE EVENT DATE: 20240817
